FAERS Safety Report 5790266-8 (Version None)
Quarter: 2008Q2

REPORT INFORMATION
  Report Type: 
  Country: None (occurrence: None)
  Receive Date: 20080626
  Receipt Date: 20080403
  Transmission Date: 20081010
  Serious: No
  Sender: FDA-Public Use
  Company Number: A0707339A

PATIENT
  Sex: Female

DRUGS (1)
  1. ALLI [Suspect]

REACTIONS (5)
  - ABDOMINAL DISTENSION [None]
  - DEPRESSED MOOD [None]
  - FREQUENT BOWEL MOVEMENTS [None]
  - FRUSTRATION [None]
  - WEIGHT INCREASED [None]
